FAERS Safety Report 10967602 (Version 1)
Quarter: 2015Q1

REPORT INFORMATION
  Report Type: Other
  Country: GB (occurrence: GB)
  Receive Date: 20150330
  Receipt Date: 20150330
  Transmission Date: 20150721
  Serious: Yes (Other)
  Sender: FDA-Public Use
  Company Number: GB-MYLANLABS-2015M1008630

PATIENT

DRUGS (8)
  1. IBUPROFEN. [Suspect]
     Active Substance: IBUPROFEN
     Dosage: 1 DF, TID (AFTER MEALS)
     Dates: start: 20150202
  2. HYDROCORTISONE. [Concomitant]
     Active Substance: HYDROCORTISONE
     Dosage: APPLY THINLY ONCE DAILY AS DIRECTED
     Dates: start: 20150108, end: 20150207
  3. VENTOLIN [Concomitant]
     Active Substance: ALBUTEROL SULFATE
     Dosage: 2 DF, UNK (INHALE 2 DOSES AS NEEDED MAXIMUM FOUR TIMES DAILY)
     Route: 055
     Dates: start: 20070726
  4. ESTRADIOL. [Concomitant]
     Active Substance: ESTRADIOL
     Dosage: 1 DF, BIWEEKLY
     Dates: start: 20140224
  5. FLUTICASONE [Concomitant]
     Active Substance: FLUTICASONE\FLUTICASONE PROPIONATE
     Dosage: 2 DF, BID
     Route: 055
     Dates: start: 20140127
  6. MACROGOL [Concomitant]
     Active Substance: POLYETHYLENE GLYCOLS
     Dosage: HALF TO TWO SACHETS DAILY IF NEEDED
     Dates: start: 20131030
  7. EFLORNITHINE [Concomitant]
     Active Substance: EFLORNITHINE
     Dosage: USE TWICE DAILY
     Dates: start: 20150108, end: 20150205
  8. OXYTETRACYCLINE [Concomitant]
     Active Substance: OXYTETRACYCLINE
     Dosage: 1 DF, QID
     Dates: start: 20150218

REACTIONS (1)
  - Wheezing [Recovered/Resolved with Sequelae]

NARRATIVE: CASE EVENT DATE: 20150302
